FAERS Safety Report 6412895-0 (Version None)
Quarter: 2009Q4

REPORT INFORMATION
  Report Type: 
  Country: None (occurrence: None)
  Receive Date: 20091023
  Receipt Date: 20091022
  Transmission Date: 20100525
  Serious: Yes (Other)
  Sender: FDA-Public Use
  Company Number: US-MYLANLABS-2009S1018274

PATIENT
  Sex: Male

DRUGS (2)
  1. CLOZAPINE [Suspect]
  2. CHEMOTHERAPEUTICS NOS [Concomitant]

REACTIONS (3)
  - LEUKOPENIA [None]
  - LUNG NEOPLASM MALIGNANT [None]
  - METASTASES TO CENTRAL NERVOUS SYSTEM [None]
